FAERS Safety Report 17489667 (Version 2)
Quarter: 2021Q1

REPORT INFORMATION
  Report Type: Report from Study
  Country: US (occurrence: US)
  Receive Date: 20200303
  Receipt Date: 20210301
  Transmission Date: 20210419
  Serious: Yes (Hospitalization)
  Sender: FDA-Public Use
  Company Number: US-ENDO PHARMACEUTICALS INC-2020-001786

PATIENT
  Age: 3 Year
  Sex: Male
  Weight: 21.4 kg

DRUGS (23)
  1. INCB018424 (RUXOLITINIB) [Suspect]
     Active Substance: RUXOLITINIB
     Dosage: 35 MG, BID
     Route: 048
     Dates: start: 20190924, end: 20191008
  2. METHOTREXATE. [Suspect]
     Active Substance: METHOTREXATE
     Indication: ACUTE LYMPHOCYTIC LEUKAEMIA
     Dosage: 15 MG ONE TIME ON DAYS 1 AND 29 OF CYCLES 1 AND 2
     Route: 037
     Dates: start: 20200108, end: 20200205
  3. PREDNISONE. [Concomitant]
     Active Substance: PREDNISONE
     Indication: ACUTE LYMPHOCYTIC LEUKAEMIA
     Dosage: 20 MG/M2, BID ON DAYS 1?5, 29?33, 57?61
     Route: 048
     Dates: start: 20200108, end: 20200205
  4. METHOTREXATE SODIUM. [Suspect]
     Active Substance: METHOTREXATE SODIUM
     Dosage: 20 MG/M2, WEEKLY (DAY 8,15, 22, 29, 36, 43, 50, 57, 64, 71, 78)
     Route: 048
     Dates: start: 20200220
  5. INCB018424 (RUXOLITINIB) [Suspect]
     Active Substance: RUXOLITINIB
     Dosage: 35 MG, BID
     Route: 048
     Dates: start: 20200310, end: 20200323
  6. METHOTREXATE SODIUM. [Suspect]
     Active Substance: METHOTREXATE SODIUM
     Indication: ACUTE LYMPHOCYTIC LEUKAEMIA
     Dosage: 20 MG/M2, WEEKLY (DAY 8,15, 22, 29, 36, 43, 50, 57, 64, 71, 78)
     Route: 048
     Dates: start: 20200114, end: 20200205
  7. INCB018424 (RUXOLITINIB) [Suspect]
     Active Substance: RUXOLITINIB
     Dosage: 35 MG, BID
     Route: 048
     Dates: start: 20190614, end: 20190628
  8. INCB018424 (RUXOLITINIB) [Suspect]
     Active Substance: RUXOLITINIB
     Dosage: 35 MG, BID
     Route: 048
     Dates: start: 20190821, end: 20190903
  9. INCB018424 (RUXOLITINIB) [Suspect]
     Active Substance: RUXOLITINIB
     Dosage: 35 MG, BID
     Route: 048
     Dates: start: 20191127, end: 20191206
  10. INCB018424 (RUXOLITINIB) [Suspect]
     Active Substance: RUXOLITINIB
     Indication: ACUTE LYMPHOCYTIC LEUKAEMIA
     Dosage: 35 MG, BID (DAYS/CYCLE FREQUENCY UNSPECIFIED)
     Route: 048
     Dates: start: 20190416, end: 20190430
  11. INCB018424 (RUXOLITINIB) [Suspect]
     Active Substance: RUXOLITINIB
     Dosage: 35 MG, BID
     Route: 048
     Dates: start: 20191220, end: 20191229
  12. INCB018424 (RUXOLITINIB) [Suspect]
     Active Substance: RUXOLITINIB
     Dosage: 35 MG, BID
     Route: 048
     Dates: start: 20190514, end: 20190530
  13. INCB018424 (RUXOLITINIB) [Suspect]
     Active Substance: RUXOLITINIB
     Dosage: 35 MG, BID
     Route: 048
     Dates: start: 20200204, end: 20200220
  14. INCB018424 (RUXOLITINIB) [Suspect]
     Active Substance: RUXOLITINIB
     Dosage: 35 MG, BID
     Route: 048
     Dates: start: 20190716, end: 20190729
  15. INCB018424 (RUXOLITINIB) [Suspect]
     Active Substance: RUXOLITINIB
     Dosage: 35 MG, BID
     Route: 048
     Dates: start: 20200108, end: 20200121
  16. VINCRISTINE [Concomitant]
     Active Substance: VINCRISTINE
     Indication: ACUTE LYMPHOCYTIC LEUKAEMIA
     Dosage: 1.19 MG ONE TIME ON DAYS 1, 29, 57
     Route: 042
     Dates: start: 20200108, end: 20200205
  17. INCB018424 (RUXOLITINIB) [Suspect]
     Active Substance: RUXOLITINIB
     Dosage: 35 MG, BID
     Route: 048
     Dates: start: 20191106, end: 20191117
  18. PREDNISONE. [Concomitant]
     Active Substance: PREDNISONE
     Dosage: 20 MG/M2, BID ON DAYS 1?5, 29?33, 57?61
     Route: 048
     Dates: start: 20200220
  19. INCB018424 (RUXOLITINIB) [Suspect]
     Active Substance: RUXOLITINIB
     Dosage: 35 MG, BID
     Route: 065
     Dates: start: 20200220, end: 20200225
  20. INCB018424 (RUXOLITINIB) [Suspect]
     Active Substance: RUXOLITINIB
     Dosage: 35 MG, BID
     Route: 048
     Dates: start: 20200407, end: 20200420
  21. METHOTREXATE. [Suspect]
     Active Substance: METHOTREXATE
     Dosage: 15 MG ONE TIME ON DAYS 1 AND 29 OF CYCLES 1 AND 2
     Route: 037
     Dates: start: 20200211
  22. MERCAPTOPURINE. [Suspect]
     Active Substance: MERCAPTOPURINE
     Indication: ACUTE LYMPHOCYTIC LEUKAEMIA
     Dosage: 60 MG ON DAYS 1?84
     Route: 048
     Dates: start: 20200108, end: 20200205
  23. VINCRISTINE [Concomitant]
     Active Substance: VINCRISTINE
     Dosage: 1.19 MG ONE TIME ON DAYS 1, 29, 57
     Route: 042
     Dates: start: 20200211

REACTIONS (4)
  - Aspartate aminotransferase increased [Recovering/Resolving]
  - Anaemia [Recovered/Resolved]
  - Dehydration [Recovering/Resolving]
  - Alanine aminotransferase increased [Recovering/Resolving]

NARRATIVE: CASE EVENT DATE: 20200203
